FAERS Safety Report 9550929 (Version 1)
Quarter: 2013Q3

REPORT INFORMATION
  Report Type: Spontaneous
  Country: US (occurrence: US)
  Receive Date: 20130924
  Receipt Date: 20130924
  Transmission Date: 20140515
  Serious: No
  Sender: FDA-Public Use
  Company Number: US-SANOFI-AVENTIS-2013SA041719

PATIENT
  Sex: Female

DRUGS (1)
  1. AUBAGIO [Suspect]
     Indication: MULTIPLE SCLEROSIS
     Dosage: TAKEN FROM- 16 DAYS AGO
     Route: 048

REACTIONS (9)
  - Dyspepsia [Unknown]
  - Decreased appetite [Unknown]
  - Rash [Unknown]
  - Vomiting [Unknown]
  - Tremor [Unknown]
  - Multiple sclerosis relapse [Unknown]
  - Blood pressure immeasurable [Unknown]
  - Paraesthesia [Unknown]
  - Alopecia [Unknown]
